FAERS Safety Report 17766360 (Version 1)
Quarter: 2020Q2

REPORT INFORMATION
  Report Type: Spontaneous
  Country: US (occurrence: US)
  Receive Date: 20200511
  Receipt Date: 20200511
  Transmission Date: 20200714
  Serious: No
  Sender: FDA-Public Use
  Company Number: US-GLAXOSMITHKLINE-US2020077697

PATIENT
  Sex: Female

DRUGS (1)
  1. ARNUITY ELLIPTA [Suspect]
     Active Substance: FLUTICASONE FUROATE
     Indication: COVID-19
     Dosage: 1 PUFF(S), QD
     Route: 055
     Dates: start: 202004

REACTIONS (3)
  - Nervousness [Unknown]
  - Tremor [Unknown]
  - Mental disorder [Unknown]
